FAERS Safety Report 7196301-7 (Version None)
Quarter: 2010Q4

REPORT INFORMATION
  Report Type: 
  Country: None (occurrence: None)
  Receive Date: 20101223
  Receipt Date: 20101020
  Transmission Date: 20110411
  Serious: No
  Sender: FDA-Public Use
  Company Number: US-AMGEN-USASP2010000776

PATIENT

DRUGS (3)
  1. ENBREL [Suspect]
     Indication: JUVENILE ARTHRITIS
     Dosage: 25 MG, 2 TIMES/WK
     Dates: start: 20060101
  2. ENBREL [Suspect]
     Dosage: UNK
  3. HUMIRA [Suspect]

REACTIONS (2)
  - DRUG INEFFECTIVE [None]
  - MIGRAINE [None]
